FAERS Safety Report 20837250 (Version 1)
Quarter: 2022Q2

REPORT INFORMATION
  Report Type: Spontaneous
  Country: GB (occurrence: GB)
  Receive Date: 20220517
  Receipt Date: 20220517
  Transmission Date: 20220721
  Serious: Yes (Hospitalization, Other)
  Sender: FDA-Public Use
  Company Number: GB-MHRA-MED-202205152136360040-GTLOL

PATIENT
  Sex: Female

DRUGS (2)
  1. BETAMETHASONE DIPROPIONATE [Suspect]
     Active Substance: BETAMETHASONE DIPROPIONATE
     Indication: Dermatitis
     Dosage: AS NEEDED (ADDITIONAL INFO: ROUTE)
     Dates: end: 20220301
  2. DESOGESTREL [Concomitant]
     Active Substance: DESOGESTREL
     Indication: Oral contraception
     Dosage: UNK (ADDITIONAL INFO: ROUTE)

REACTIONS (1)
  - Topical steroid withdrawal reaction [Not Recovered/Not Resolved]
